FAERS Safety Report 14933569 (Version 1)
Quarter: 2018Q2

REPORT INFORMATION
  Report Type: Report from Study
  Country: JP (occurrence: JP)
  Receive Date: 20180524
  Receipt Date: 20180524
  Transmission Date: 20180711
  Serious: Yes (Hospitalization, Other)
  Sender: FDA-Public Use
  Company Number: JP-FERRINGPH-2017FE06707

PATIENT

DRUGS (9)
  1. DEGARELIX [Suspect]
     Active Substance: DEGARELIX
     Dosage: 240 MG, ONCE/SINGLE
     Route: 058
     Dates: start: 20130815
  2. FEBURIC [Concomitant]
     Active Substance: FEBUXOSTAT
     Dosage: UNK
  3. KREMEZIN [Concomitant]
     Active Substance: ACTIVATED CHARCOAL
     Dosage: UNK
  4. DEGARELIX [Suspect]
     Active Substance: DEGARELIX
     Indication: PROSTATE CANCER
     Dosage: 80 MG, MONTHLY
     Route: 058
     Dates: end: 20151217
  5. LOXOPROFEN [Concomitant]
     Active Substance: LOXOPROFEN
     Dosage: UNK
  6. BANAN [Concomitant]
     Active Substance: CEFPODOXIME PROXETIL
  7. KLARICID                           /00984601/ [Concomitant]
     Active Substance: CLARITHROMYCIN
  8. NAFTOPIDIL [Concomitant]
     Active Substance: NAFTOPIDIL
     Dosage: UNK
  9. SAWACILLIN [Concomitant]
     Active Substance: AMOXICILLIN

REACTIONS (1)
  - Liver disorder [Recovered/Resolved]

NARRATIVE: CASE EVENT DATE: 20151217
